FAERS Safety Report 8184265-9 (Version None)
Quarter: 2012Q1

REPORT INFORMATION
  Report Type: 
  Country: None (occurrence: None)
  Receive Date: 20120305
  Receipt Date: 20120302
  Transmission Date: 20120608
  Serious: Yes (Death)
  Sender: FDA-Public Use
  Company Number: US-ROXANE LABORATORIES, INC.-2012-RO-00760RO

PATIENT
  Age: 21 Year
  Sex: Male

DRUGS (5)
  1. OXYCODONE HCL [Suspect]
  2. SUBOXONE [Suspect]
  3. METHADON HCL TAB [Suspect]
  4. HYDROCODONE BITARTRATE [Suspect]
  5. OXYMORPHONE [Suspect]

REACTIONS (1)
  - MULTIPLE DRUG OVERDOSE [None]
